FAERS Safety Report 17043026 (Version 1)
Quarter: 2019Q4

REPORT INFORMATION
  Report Type: Report from Study
  Country: US (occurrence: US)
  Receive Date: 20191118
  Receipt Date: 20191118
  Transmission Date: 20200122
  Serious: No
  Sender: FDA-Public Use
  Company Number: US-KYOWAKIRIN-2019BKK017934

PATIENT

DRUGS (1)
  1. GRANISETRON [Suspect]
     Active Substance: GRANISETRON
     Indication: PROPHYLAXIS OF NAUSEA AND VOMITING
     Dosage: APPLY PATCH 1 HOUR PRIOR TO CHEMO AND WEAR FOR 7 DAYS
     Route: 065
     Dates: end: 20191010

REACTIONS (2)
  - Skin burning sensation [Unknown]
  - Inappropriate schedule of product administration [Recovered/Resolved]
